FAERS Safety Report 23465136 (Version 1)
Quarter: 2024Q1

REPORT INFORMATION
  Report Type: Spontaneous
  Country: HU (occurrence: HU)
  Receive Date: 20240201
  Receipt Date: 20240201
  Transmission Date: 20240410
  Serious: Yes (Disabling)
  Sender: FDA-Public Use
  Company Number: None

PATIENT
  Age: 76 Year
  Sex: Male
  Weight: 75 kg

DRUGS (6)
  1. GEFITINIB [Suspect]
     Active Substance: GEFITINIB
     Indication: Lung neoplasm
     Route: 048
     Dates: start: 202301
  2. FINASTERIDE [Concomitant]
     Active Substance: FINASTERIDE
     Indication: Benign prostatic hyperplasia
     Route: 048
  3. RAMIPRIL [Concomitant]
     Active Substance: RAMIPRIL
     Indication: Hypertension
     Route: 048
  4. PIRACETAM [Concomitant]
     Active Substance: PIRACETAM
     Indication: Cerebrovascular disorder
     Route: 048
  5. ATORVASTATIN RIVOPHARM [Concomitant]
     Indication: Hyperlipidaemia
     Route: 048
  6. CLOPIDOGREL BISULFATE [Concomitant]
     Active Substance: CLOPIDOGREL BISULFATE
     Indication: Angina pectoris
     Route: 048

REACTIONS (3)
  - Muscle rupture [Not Recovered/Not Resolved]
  - Muscle spasms [Not Recovered/Not Resolved]
  - Diarrhoea [Not Recovered/Not Resolved]

NARRATIVE: CASE EVENT DATE: 20231015
